FAERS Safety Report 9159377 (Version 1)
Quarter: 2013Q1

REPORT INFORMATION
  Report Type: Spontaneous
  Country: JP (occurrence: None)
  Receive Date: 20130212
  Receipt Date: 20130212
  Transmission Date: 20140127
  Serious: Yes (Other)
  Sender: FDA-Public Use
  Company Number: TCI2013A00245

PATIENT
  Age: 50 Year
  Sex: Male

DRUGS (1)
  1. NESINA [Suspect]
     Indication: DIABETES MELLITUS
     Route: 048

REACTIONS (3)
  - Jaundice [None]
  - Aspartate aminotransferase increased [None]
  - Alanine aminotransferase increased [None]
